FAERS Safety Report 4993257-X (Version None)
Quarter: 2006Q1

REPORT INFORMATION
  Report Type: 
  Country: None (occurrence: None)
  Receive Date: 20060314
  Receipt Date: 20050316
  Transmission Date: 20060701
  Serious: Yes (Other)
  Sender: FDA-Public Use
  Company Number: 200511100BCC

PATIENT
  Age: 65 Year
  Sex: Female
  Weight: 71.2147 kg

DRUGS (2)
  1. ALEVE (CAPLET) [Suspect]
     Dosage: 220 MG, ORAL
     Route: 048
     Dates: start: 20050316
  2. EFFEXOR [Concomitant]

REACTIONS (7)
  - BLOOD PRESSURE INCREASED [None]
  - BURNING SENSATION [None]
  - ERYTHEMA [None]
  - HYPERSENSITIVITY [None]
  - OEDEMA [None]
  - OEDEMA PERIPHERAL [None]
  - PRURITUS [None]
